FAERS Safety Report 4688431-6 (Version None)
Quarter: 2005Q2

REPORT INFORMATION
  Report Type: 
  Country: None (occurrence: None)
  Receive Date: 20050609
  Receipt Date: 20050526
  Transmission Date: 20051028
  Serious: Yes (Hospitalization)
  Sender: FDA-Public Use
  Company Number: S03-341-631

PATIENT
  Age: 67 Year
  Sex: Female
  Weight: 43 kg

DRUGS (1)
  1. PS-241(BORTEZOMIB) SOLUTION (EXCEPT SYRUP) [Suspect]
     Indication: MULTIPLE MYELOMA
     Dosage: 1.75 MG MG BIW, IV BOLUS
     Route: 040
     Dates: start: 20030930, end: 20031003

REACTIONS (6)
  - BLOOD LACTATE DEHYDROGENASE INCREASED [None]
  - FEBRILE BONE MARROW APLASIA [None]
  - HISTIOCYTOSIS HAEMATOPHAGIC [None]
  - RENAL FAILURE ACUTE [None]
  - SERUM FERRITIN INCREASED [None]
  - THROMBOCYTOPENIA [None]
